FAERS Safety Report 5124852-5 (Version None)
Quarter: 2006Q4

REPORT INFORMATION
  Report Type: 
  Country: None (occurrence: None)
  Receive Date: 20061011
  Receipt Date: 20061003
  Transmission Date: 20070319
  Serious: Yes (Other)
  Sender: FDA-Public Use
  Company Number: FR-ROCHE-465770

PATIENT
  Age: 80 Year
  Sex: Female

DRUGS (13)
  1. ROCEPHIN [Suspect]
     Indication: URINARY TRACT INFECTION
     Dosage: FORM REPORTED AS INJECTABLE SOLUTION. THE PATIENT RECEIVED A TOTAL OF SIX INJECTIONS.
     Route: 030
     Dates: start: 20060715, end: 20060715
  2. FLUVOXAMINE MALEATE [Concomitant]
  3. BROMAZEPAM [Concomitant]
  4. CONTRAMAL [Concomitant]
  5. CALCIUM GLUCONATE [Concomitant]
  6. VITAMINE D [Concomitant]
  7. FOSAMAX [Concomitant]
  8. OMEPRAZOLE [Concomitant]
  9. SOPROL [Concomitant]
  10. DOLIPRANE [Concomitant]
  11. CORTANCYL [Concomitant]
     Indication: RHEUMATOID ARTHRITIS
  12. FENOFIBRATE [Concomitant]
  13. ZOLPIDEM TARTRATE [Concomitant]
     Indication: INSOMNIA
     Dosage: REPORTED AS ZOLIPIDEM.

REACTIONS (2)
  - INJECTION SITE NECROSIS [None]
  - SCAR [None]
